FAERS Safety Report 8161115-8 (Version None)
Quarter: 2012Q1

REPORT INFORMATION
  Report Type: 
  Country: None (occurrence: None)
  Receive Date: 20120224
  Receipt Date: 20120220
  Transmission Date: 20120608
  Serious: No
  Sender: FDA-Public Use
  Company Number: US-PFIZER INC-2012045760

PATIENT
  Sex: Male

DRUGS (1)
  1. XALKORI [Suspect]
     Dosage: 250 MG, UNK
     Dates: start: 20120209

REACTIONS (5)
  - BACK PAIN [None]
  - DECREASED APPETITE [None]
  - DIZZINESS [None]
  - VISION BLURRED [None]
  - DYSGEUSIA [None]
